FAERS Safety Report 6201484-9 (Version None)
Quarter: 2009Q2

REPORT INFORMATION
  Report Type: 
  Country: None (occurrence: None)
  Receive Date: 20090519
  Receipt Date: 20090504
  Transmission Date: 20091009
  Serious: Yes (Hospitalization)
  Sender: FDA-Public Use
  Company Number: 2009S1007687

PATIENT
  Age: 54 Year
  Sex: Male

DRUGS (18)
  1. SIMVASTATIN [Suspect]
     Indication: MYOCARDIAL INFARCTION
     Dosage: 40 MG;DAILY
  2. CYCLOSPORINE [Suspect]
     Indication: PROPHYLAXIS AGAINST GRAFT VERSUS HOST DISEASE
     Dosage: 5 MG; INTRAVENOUS; ..5 MG; NTRAVENOUS
     Route: 042
  3. RISPERIDONE [Suspect]
     Indication: PSYCHOTIC DISORDER
     Dosage: 1 MG;DAILY;ORAL
     Route: 048
  4. ACYCLOVIR [Suspect]
     Indication: INFECTION PROPHYLAXIS
     Dosage: 250 MG; INTRAVENOUS
     Route: 042
  5. VORICONAZOLE (VORICONAZOLE) [Suspect]
     Indication: INFECTION PROPHYLAXIS
     Dosage: 200 MG; ORAL
     Route: 048
  6. BUSULFAN [Concomitant]
  7. FLUDARABINE PHOSPHATE [Concomitant]
  8. IDARUBICIN HCL [Concomitant]
  9. CYTARABINE [Concomitant]
  10. ETOPOSIDE [Concomitant]
  11. MITOXANTRONE [Concomitant]
  12. PENTAMIDINE ISETHIONATE [Concomitant]
  13. IMMUNOGLOBULINS [Concomitant]
  14. METHOTREXATE [Concomitant]
  15. MEROPENEM [Concomitant]
  16. TEICOPLANIN [Concomitant]
  17. ENALAPRIL MALEATE [Concomitant]
  18. ATENOLOL [Concomitant]

REACTIONS (6)
  - ACUTE MYELOID LEUKAEMIA [None]
  - CONFUSIONAL STATE [None]
  - DRUG INTERACTION [None]
  - PSYCHOTIC DISORDER [None]
  - RENAL FAILURE ACUTE [None]
  - RHABDOMYOLYSIS [None]
